FAERS Safety Report 8483908-X (Version None)
Quarter: 2012Q2

REPORT INFORMATION
  Report Type: 
  Country: None (occurrence: None)
  Receive Date: 20120402
  Receipt Date: 20110408
  Transmission Date: 20120825
  Serious: Yes (Hospitalization)
  Sender: FDA-Public Use
  Company Number: A-US2011-47360

PATIENT
  Age: 47 Year
  Sex: Female

DRUGS (2)
  1. EPOPROSTENOL SODIUM [Suspect]
     Indication: PULMONARY ARTERIAL HYPERTENSION
     Dosage: 25 NG/KG/MIN, INTRAVENOUS
     Route: 042
     Dates: start: 20101202
  2. SILDENAFIL CITRATE [Concomitant]

REACTIONS (1)
  - DEVICE RELATED INFECTION [None]
